FAERS Safety Report 10040698 (Version 1)
Quarter: 2014Q1

REPORT INFORMATION
  Report Type: Spontaneous
  Country: SE (occurrence: SE)
  Receive Date: 20140327
  Receipt Date: 20140327
  Transmission Date: 20141002
  Serious: Yes (Disabling)
  Sender: FDA-Public Use
  Company Number: SE-TEVA-471170ISR

PATIENT
  Age: 15 Year
  Sex: Female

DRUGS (2)
  1. CARBOPLATIN [Suspect]
     Indication: RHABDOMYOSARCOMA
     Dosage: 2.4 G/M2
     Route: 065
  2. IFOSFAMIDE [Suspect]
     Indication: RHABDOMYOSARCOMA
     Dosage: 36 G/M2
     Route: 065

REACTIONS (1)
  - Ovarian disorder [Unknown]
